FAERS Safety Report 9167529 (Version 2)
Quarter: 2013Q1

REPORT INFORMATION
  Report Type: Spontaneous
  Country: US (occurrence: US)
  Receive Date: 20130318
  Receipt Date: 20130325
  Transmission Date: 20140127
  Serious: Yes (Death, Hospitalization)
  Sender: FDA-Public Use
  Company Number: US-JNJFOC-20130304968

PATIENT
  Age: 34 Year
  Sex: Male

DRUGS (6)
  1. DOXORUBICIN HYDROCHLORIDE [Suspect]
     Indication: KAPOSI^S SARCOMA
     Route: 042
  2. EFAVIRENZ [Suspect]
     Indication: ANTIVIRAL TREATMENT
     Route: 065
  3. TENOFOVIR [Suspect]
     Indication: ANTIVIRAL TREATMENT
     Route: 065
  4. EMTRICITABINE [Suspect]
     Indication: ANTIVIRAL TREATMENT
     Route: 065
  5. VALGANCICLOVIR [Suspect]
     Indication: KAPOSI^S SARCOMA
     Route: 065
  6. VINBLASTINE [Suspect]
     Indication: KAPOSI^S SARCOMA
     Route: 065

REACTIONS (1)
  - Sepsis [Fatal]
